FAERS Safety Report 8928891 (Version 2)
Quarter: 2014Q1

REPORT INFORMATION
  Report Type: Report from Study
  Country: US (occurrence: US)
  Receive Date: 20121127
  Receipt Date: 20140213
  Transmission Date: 20141002
  Serious: Yes (Hospitalization)
  Sender: FDA-Public Use
  Company Number: US-ALEXION-A201202259

PATIENT
  Sex: Female

DRUGS (2)
  1. SOLIRIS [Suspect]
     Indication: ANTIPHOSPHOLIPID SYNDROME
     Dosage: UNK
     Route: 042
  2. SOLIRIS [Suspect]
     Indication: OFF LABEL USE

REACTIONS (2)
  - Sepsis [Unknown]
  - Off label use [Unknown]
